FAERS Safety Report 4312513-1 (Version None)
Quarter: 2004Q1

REPORT INFORMATION
  Report Type: 
  Country: None (occurrence: None)
  Receive Date: 20040303
  Receipt Date: 20040218
  Transmission Date: 20041129
  Serious: Yes (Other)
  Sender: FDA-Public Use
  Company Number: 2004UW02924

PATIENT
  Age: 9 Year
  Sex: Male

DRUGS (2)
  1. SEROQUEL [Suspect]
     Dosage: 100 MG PO
     Route: 048
  2. SERZONE [Suspect]
     Dosage: 100 MG PO
     Route: 048

REACTIONS (2)
  - INTENTIONAL SELF-INJURY [None]
  - MEDICATION ERROR [None]
